FAERS Safety Report 14661525 (Version 2)
Quarter: 2018Q2

REPORT INFORMATION
  Report Type: Report from Study
  Country: US (occurrence: US)
  Receive Date: 20180320
  Receipt Date: 20180425
  Transmission Date: 20180711
  Serious: Yes (Hospitalization)
  Sender: FDA-Public Use
  Company Number: US-ACTELION-A-US2018-169302

PATIENT
  Age: 57 Year
  Sex: Female
  Weight: 68.27 kg

DRUGS (12)
  1. WARFARIN [Concomitant]
     Active Substance: WARFARIN
  2. DILTIAZEM. [Concomitant]
     Active Substance: DILTIAZEM
  3. FUROSEMIDE. [Concomitant]
     Active Substance: FUROSEMIDE
  4. UPTRAVI [Suspect]
     Active Substance: SELEXIPAG
     Dosage: UNK
     Route: 048
     Dates: start: 20171212
  5. POTASSIUM CHLORIDE. [Concomitant]
     Active Substance: POTASSIUM CHLORIDE
     Dosage: UNK
     Dates: start: 20171122
  6. OXYGEN. [Concomitant]
     Active Substance: OXYGEN
     Dosage: UNK
     Dates: start: 2009
  7. TYVASO [Concomitant]
     Active Substance: TREPROSTINIL
  8. ADVAIR HFA [Concomitant]
     Active Substance: FLUTICASONE PROPIONATE\SALMETEROL XINAFOATE
     Dosage: UNK
     Dates: start: 20070727
  9. TRACLEER [Concomitant]
     Active Substance: BOSENTAN
     Indication: PULMONARY ARTERIAL HYPERTENSION
     Dosage: UNK
     Dates: start: 2002
  10. UPTRAVI [Suspect]
     Active Substance: SELEXIPAG
     Indication: PULMONARY ARTERIAL HYPERTENSION
     Dosage: 600 MCG, BID
     Route: 048
     Dates: start: 201802
  11. PAROXETINE. [Concomitant]
     Active Substance: PAROXETINE
     Dosage: UNK
     Dates: start: 20070727
  12. SPIRONOLACTONE. [Concomitant]
     Active Substance: SPIRONOLACTONE
     Dosage: UNK
     Dates: start: 20150826

REACTIONS (5)
  - Fall [Unknown]
  - Head injury [Unknown]
  - Syncope [Recovered/Resolved]
  - Pain in extremity [Unknown]
  - Ankle fracture [Unknown]

NARRATIVE: CASE EVENT DATE: 201802
